FAERS Safety Report 4786374-0 (Version None)
Quarter: 2005Q3

REPORT INFORMATION
  Report Type: 
  Country: None (occurrence: None)
  Receive Date: 20050927
  Receipt Date: 20050817
  Transmission Date: 20060218
  Serious: No
  Sender: FDA-Public Use
  Company Number: USA0508105712

PATIENT
  Age: 43 Year
  Sex: Female
  Weight: 89 kg

DRUGS (16)
  1. STRATTERA [Suspect]
     Indication: ATTENTION DEFICIT/HYPERACTIVITY DISORDER
     Dosage: 60 MG
     Dates: start: 20050809
  2. SEROQUEL [Concomitant]
  3. KLONOPIN [Concomitant]
  4. AMBIEN [Concomitant]
  5. COGENTIN [Concomitant]
  6. ENBREL [Concomitant]
  7. DITROPAN   /SCH/  (OXYBUTYNIN HYDROCHLORIDE) [Concomitant]
  8. NEXIUM [Concomitant]
  9. MOBIC [Concomitant]
  10. PERCOCET [Concomitant]
  11. PHENERGAN [Concomitant]
  12. ACETAMINOPHEN [Concomitant]
  13. SALINE (SODIUM CHLORIDE) [Concomitant]
  14. VITAMIN B COMPLEX CAP [Concomitant]
  15. CORTISONE ACETATE TAB [Concomitant]
  16. AFRIN [Concomitant]

REACTIONS (9)
  - ABDOMINAL DISTENSION [None]
  - DECREASED APPETITE [None]
  - DIARRHOEA [None]
  - DRY MOUTH [None]
  - DYSMENORRHOEA [None]
  - FLUID RETENTION [None]
  - IRRITABILITY [None]
  - NAUSEA [None]
  - PSYCHOMOTOR HYPERACTIVITY [None]
